FAERS Safety Report 20195686 (Version 1)
Quarter: 2021Q4

REPORT INFORMATION
  Report Type: Spontaneous
  Country: US (occurrence: US)
  Receive Date: 20211216
  Receipt Date: 20211216
  Transmission Date: 20220303
  Serious: Yes (Disabling)
  Sender: FDA-Public Use
  Company Number: US-BoehringerIngelheim-2021-BI-143677

PATIENT
  Age: 61 Year
  Sex: Female

DRUGS (1)
  1. SPIRIVA [Suspect]
     Active Substance: TIOTROPIUM BROMIDE MONOHYDRATE
     Indication: Product used for unknown indication
     Dosage: INHALE 1 CAPSULE INTO LUNGS ONCE DAILY
     Route: 055
     Dates: start: 20201225, end: 20211214

REACTIONS (4)
  - Surgery [Recovered/Resolved]
  - General physical health deterioration [Not Recovered/Not Resolved]
  - Abscess oral [Not Recovered/Not Resolved]
  - Glucose tolerance impaired [Not Recovered/Not Resolved]

NARRATIVE: CASE EVENT DATE: 20211214
